FAERS Safety Report 8400224-2 (Version None)
Quarter: 2012Q2

REPORT INFORMATION
  Report Type: 
  Country: None (occurrence: None)
  Receive Date: 20120531
  Receipt Date: 20120524
  Transmission Date: 20120825
  Serious: Yes (Other)
  Sender: FDA-Public Use
  Company Number: US-ABBOTT-12P-163-0939035-00

PATIENT
  Sex: Female
  Weight: 95.34 kg

DRUGS (6)
  1. PRAVASTATIN [Concomitant]
     Indication: BLOOD CHOLESTEROL INCREASED
  2. HUMIRA [Suspect]
     Indication: ANKYLOSING SPONDYLITIS
     Dates: start: 20100101
  3. HYDROCHLOROTHIAZIDE [Concomitant]
     Indication: HYPERTENSION
  4. VICOPROFEN [Concomitant]
     Indication: PAIN
  5. NEURONTIN [Concomitant]
     Indication: NEUROPATHY PERIPHERAL
  6. PROZAC [Concomitant]
     Indication: DEPRESSION

REACTIONS (1)
  - LACERATION [None]
